FAERS Safety Report 15418240 (Version 1)
Quarter: 2018Q4

REPORT INFORMATION
  Report Type: Spontaneous
  Country: US (occurrence: US)
  Receive Date: 20180924
  Receipt Date: 20180924
  Transmission Date: 20190204
  Serious: Yes (Other)
  Sender: FDA-Public Use
  Company Number: US-STANDARD HOMEOPATHIC COMPANY-2055259

PATIENT
  Age: 15 Month
  Sex: Female

DRUGS (1)
  1. HYLAND^S BABY NIGHTTIME TINY COLD SYRUP [Suspect]
     Active Substance: HOMEOPATHICS
     Route: 048

REACTIONS (1)
  - Hypersensitivity [None]

NARRATIVE: CASE EVENT DATE: 20180910
